FAERS Safety Report 10064606 (Version 1)
Quarter: 2014Q2

REPORT INFORMATION
  Report Type: Spontaneous
  Country: US (occurrence: US)
  Receive Date: 20140408
  Receipt Date: 20140408
  Transmission Date: 20141212
  Serious: Yes (Other)
  Sender: FDA-Public Use
  Company Number: US-UCBSA-116440

PATIENT
  Age: 61 Year
  Sex: Female

DRUGS (6)
  1. VIMPAT IV [Suspect]
     Route: 042
     Dates: start: 20140301, end: 201403
  2. VIMPAT [Suspect]
     Route: 048
     Dates: start: 20140304, end: 201403
  3. VIMPAT [Suspect]
     Dosage: 50MG IN THE MORNING AND 100MG IN THE NIGHT
     Route: 048
     Dates: start: 20140312, end: 201403
  4. TEGRETOL [Suspect]
     Dates: end: 20140304
  5. PHENOBARB [Concomitant]
  6. LIPITOR [Concomitant]

REACTIONS (7)
  - Urticaria [Recovering/Resolving]
  - Fluid retention [Recovering/Resolving]
  - Weight decreased [Recovering/Resolving]
  - Somnolence [Recovered/Resolved]
  - Pruritus [Recovering/Resolving]
  - Hyperhidrosis [Recovering/Resolving]
  - Inappropriate schedule of drug administration [Recovered/Resolved]
